FAERS Safety Report 11500411 (Version 1)
Quarter: 2015Q3

REPORT INFORMATION
  Report Type: Spontaneous
  Country: US (occurrence: US)
  Receive Date: 20150914
  Receipt Date: 20150914
  Transmission Date: 20151125
  Serious: No
  Sender: FDA-Public Use
  Company Number: US-PFIZER INC-2015294871

PATIENT
  Sex: Female

DRUGS (2)
  1. LYRICA [Suspect]
     Active Substance: PREGABALIN
     Indication: NEURALGIA
  2. LYRICA [Suspect]
     Active Substance: PREGABALIN
     Indication: FIBROMYALGIA
     Dosage: UNK

REACTIONS (10)
  - Anxiety [Unknown]
  - Aggression [Unknown]
  - Condition aggravated [Unknown]
  - Panic attack [Unknown]
  - Depression [Unknown]
  - Anger [Unknown]
  - Irritability [Unknown]
  - Agitation [Unknown]
  - Insomnia [Unknown]
  - Impulse-control disorder [Unknown]
